FAERS Safety Report 25224189 (Version 5)
Quarter: 2025Q4

REPORT INFORMATION
  Report Type: Spontaneous
  Country: CA (occurrence: CA)
  Receive Date: 20250422
  Receipt Date: 20251019
  Transmission Date: 20260118
  Serious: Yes (Other)
  Sender: CELLTRION
  Company Number: CA-PFIZER INC-202500080517

PATIENT

DRUGS (5)
  1. INFLIXIMAB [Suspect]
     Active Substance: INFLIXIMAB
     Indication: Colitis ulcerative
     Dosage: 400 MG
     Route: 041
  2. INFLECTRA [Suspect]
     Active Substance: INFLIXIMAB-DYYB
     Indication: Colitis ulcerative
     Dosage: 400 MG,EVERY 6 WEEK
     Route: 041
     Dates: start: 20191228
  3. INFLECTRA [Suspect]
     Active Substance: INFLIXIMAB-DYYB
     Dosage: 400 MG, EVERY 6 WEEK
     Route: 041
     Dates: start: 20250407
  4. INFLECTRA [Suspect]
     Active Substance: INFLIXIMAB-DYYB
     Dosage: 400 MG, 8 WEEKS AND 1 DAY (PRESCRIBED TREATMENTS ARE EVERY 6 WEEKS)
     Route: 041
     Dates: start: 20250603
  5. MESALAMINE [Concomitant]
     Active Substance: MESALAMINE
     Dosage: 1 DF, (2.4GM ),1X/DAY
     Route: 048

REACTIONS (3)
  - Cholangitis sclerosing [Unknown]
  - Autoimmune hepatitis [Unknown]
  - Underdose [Unknown]
